FAERS Safety Report 13103678 (Version 2)
Quarter: 2018Q2

REPORT INFORMATION
  Report Type: Report from Study
  Country: None (occurrence: US)
  Receive Date: 20170111
  Receipt Date: 20180618
  Transmission Date: 20180711
  Serious: Yes (Disabling, Other)
  Sender: FDA-Public Use
  Company Number: US-ABBVIE-17K-163-1831762-00

PATIENT
  Sex: Female

DRUGS (1)
  1. HUMIRA [Suspect]
     Active Substance: ADALIMUMAB
     Indication: COLITIS ULCERATIVE
     Route: 058

REACTIONS (7)
  - Pulmonary embolism [Unknown]
  - Colitis ulcerative [Unknown]
  - Fibromyalgia [Unknown]
  - Musculoskeletal disorder [Unknown]
  - Colon dysplasia [Unknown]
  - Blood pressure decreased [Unknown]
  - Asthenia [Unknown]

NARRATIVE: CASE EVENT DATE: 2014
